FAERS Safety Report 23512059 (Version 1)
Quarter: 2024Q1

REPORT INFORMATION
  Report Type: Spontaneous
  Country: US (occurrence: US)
  Receive Date: 20240212
  Receipt Date: 20240212
  Transmission Date: 20240409
  Serious: No
  Sender: FDA-Public Use
  Company Number: US-SA-SAC20240207000148

PATIENT
  Age: 53 Year
  Sex: Female

DRUGS (50)
  1. DUPIXENT [Suspect]
     Active Substance: DUPILUMAB
     Indication: Dermatitis atopic
     Dosage: 600 MG 1X
     Route: 058
  2. CELLCEPT [Concomitant]
     Active Substance: MYCOPHENOLATE MOFETIL
  3. FOSAMAX [Concomitant]
     Active Substance: ALENDRONATE SODIUM
  4. IRON [Concomitant]
     Active Substance: IRON
  5. KETOPROFEN [Concomitant]
     Active Substance: KETOPROFEN
  6. LEVALBUTEROL [Concomitant]
     Active Substance: LEVALBUTEROL
     Dosage: 1.25MG/3
  7. LIDOCAINE [Concomitant]
     Active Substance: LIDOCAINE
  8. NOVOLIN 70/30 [Concomitant]
     Active Substance: INSULIN HUMAN
  9. NYSTATIN [Concomitant]
     Active Substance: NYSTATIN
  10. ONDANSETRON [Concomitant]
     Active Substance: ONDANSETRON
  11. SYMBICORT [Concomitant]
     Active Substance: BUDESONIDE\FORMOTEROL FUMARATE DIHYDRATE
  12. TRESIBA [Concomitant]
     Active Substance: INSULIN DEGLUDEC
  13. ADVAIR HFA [Concomitant]
     Active Substance: FLUTICASONE PROPIONATE\SALMETEROL XINAFOATE
  14. ATORVASTATIN [Concomitant]
     Active Substance: ATORVASTATIN
  15. BUPROPION HYDROCHLORIDE [Concomitant]
     Active Substance: BUPROPION HYDROCHLORIDE
  16. VITAMIN B12 [Concomitant]
     Active Substance: CYANOCOBALAMIN
  17. FOLIC ACID [Concomitant]
     Active Substance: FOLIC ACID
  18. HYDROXYZINE [Concomitant]
     Active Substance: HYDROXYZINE HYDROCHLORIDE
  19. JARDIANCE [Concomitant]
     Active Substance: EMPAGLIFLOZIN
  20. OPZELURA [Concomitant]
     Active Substance: RUXOLITINIB PHOSPHATE
  21. PIMECROLIMUS [Concomitant]
     Active Substance: PIMECROLIMUS
  22. VENLAFAXINE [Concomitant]
     Active Substance: VENLAFAXINE HYDROCHLORIDE
  23. VITAMIN C [Concomitant]
     Active Substance: ASCORBIC ACID
  24. AMLODIPINE BESYLATE [Concomitant]
     Active Substance: AMLODIPINE BESYLATE
  25. BIOTIN [Concomitant]
     Active Substance: BIOTIN
  26. DOCUSATE SOD [Concomitant]
  27. FAMOTIDINE [Concomitant]
     Active Substance: FAMOTIDINE
  28. FUROSEMIDE [Concomitant]
     Active Substance: FUROSEMIDE
  29. GABAPENTIN [Concomitant]
     Active Substance: GABAPENTIN
  30. HYDRALAZINE [Concomitant]
     Active Substance: HYDRALAZINE HYDROCHLORIDE
  31. IRBESARTAN [Concomitant]
     Active Substance: IRBESARTAN
  32. LORATADINE [Concomitant]
     Active Substance: LORATADINE
  33. METOPROLOL SUCCINATE [Concomitant]
     Active Substance: METOPROLOL SUCCINATE
  34. MONTELUKAST [Concomitant]
     Active Substance: MONTELUKAST SODIUM
  35. VITAMIN D NOS [Concomitant]
     Active Substance: VITAMIN D NOS
  36. PREDNISONE [Concomitant]
     Active Substance: PREDNISONE
  37. APPLE CIDER [Concomitant]
  38. ZINC [Concomitant]
     Active Substance: PYRITHIONE ZINC\ZINC\ZINC CHLORIDE
  39. ACETAMINOPHEN [Concomitant]
     Active Substance: ACETAMINOPHEN
  40. APPLE CIDER [Concomitant]
  41. AZELASTINE HYDROCHLORIDE [Concomitant]
     Active Substance: AZELASTINE HYDROCHLORIDE
  42. MAGNESIUM [Concomitant]
     Active Substance: MAGNESIUM
  43. VITAMINS NOS [Concomitant]
     Active Substance: VITAMINS
  44. NITROGLYCERIN [Concomitant]
     Active Substance: NITROGLYCERIN
  45. NYSTATIN [Concomitant]
     Active Substance: NYSTATIN
  46. TRESIBA [Concomitant]
     Active Substance: INSULIN DEGLUDEC
  47. DICLOFENAC [Concomitant]
     Active Substance: DICLOFENAC
  48. ALBUTEROL SULFATE [Concomitant]
     Active Substance: ALBUTEROL SULFATE
  49. FERROUS GLUCONATE [Concomitant]
     Active Substance: FERROUS GLUCONATE
  50. HYDROXYCHLOROQUINE [Concomitant]
     Active Substance: HYDROXYCHLOROQUINE

REACTIONS (9)
  - Dermatitis [Not Recovered/Not Resolved]
  - Product dose omission issue [Unknown]
  - Essential tremor [Not Recovered/Not Resolved]
  - Depression [Not Recovered/Not Resolved]
  - Weight increased [Not Recovered/Not Resolved]
  - Gait disturbance [Not Recovered/Not Resolved]
  - Skin injury [Not Recovered/Not Resolved]
  - Hyperphagia [Not Recovered/Not Resolved]
  - Restlessness [Not Recovered/Not Resolved]
